FAERS Safety Report 8447070-1 (Version None)
Quarter: 2012Q2

REPORT INFORMATION
  Report Type: 
  Country: None (occurrence: None)
  Receive Date: 20120619
  Receipt Date: 20120615
  Transmission Date: 20120825
  Serious: Yes (Other)
  Sender: FDA-Public Use
  Company Number: PHHY2012AU051160

PATIENT
  Sex: Female

DRUGS (5)
  1. ATENOLOL [Concomitant]
  2. INDAPAMIDE [Concomitant]
  3. ATORVASTATIN [Suspect]
     Indication: HYPERCHOLESTEROLAEMIA
     Dosage: 40 MG, (HALF OF TABLET DAILY)
     Route: 048
     Dates: start: 20120601, end: 20120610
  4. LERCANIDIPINE [Concomitant]
  5. ASPIRIN [Concomitant]

REACTIONS (6)
  - LETHARGY [None]
  - BALANCE DISORDER [None]
  - MYALGIA [None]
  - URINE COLOUR ABNORMAL [None]
  - HYPOAESTHESIA [None]
  - PARAESTHESIA [None]
